FAERS Safety Report 7823768-0 (Version None)
Quarter: 2011Q4

REPORT INFORMATION
  Report Type: 
  Country: None (occurrence: None)
  Receive Date: 20111019
  Receipt Date: 20111014
  Transmission Date: 20120403
  Serious: Yes (Hospitalization)
  Sender: FDA-Public Use
  Company Number: US-CEPHALON-2011005400

PATIENT
  Age: 87 Year
  Sex: Female

DRUGS (2)
  1. RITUXAN [Concomitant]
     Dates: start: 20110701
  2. TREANDA [Suspect]
     Indication: CHRONIC LYMPHOCYTIC LEUKAEMIA
     Route: 042
     Dates: start: 20110701, end: 20110701

REACTIONS (1)
  - PANCYTOPENIA [None]
